FAERS Safety Report 18258661 (Version 2)
Quarter: 2020Q3

REPORT INFORMATION
  Report Type: Spontaneous
  Country: US (occurrence: US)
  Receive Date: 20200911
  Receipt Date: 20200918
  Transmission Date: 20201103
  Serious: Yes (Hospitalization, Other)
  Sender: FDA-Public Use
  Company Number: US-RECORDATI RARE DISEASES-2089670

PATIENT
  Age: 37 Year
  Sex: Male

DRUGS (12)
  1. CYSTADANE [Suspect]
     Active Substance: BETAINE
     Indication: PRODUCT USED FOR UNKNOWN INDICATION
     Dates: start: 199507
  2. VITAMIN B6 [Concomitant]
     Active Substance: PYRIDOXINE HYDROCHLORIDE
  3. GABAPENTIN. [Concomitant]
     Active Substance: GABAPENTIN
  4. VITAMIN B12 [Concomitant]
     Active Substance: CYANOCOBALAMIN
  5. CYSTADANE [Suspect]
     Active Substance: BETAINE
  6. HYDROXYZINE [Concomitant]
     Active Substance: HYDROXYZINE HYDROCHLORIDE
  7. LORAZEPAM. [Concomitant]
     Active Substance: LORAZEPAM
  8. MULTIVITAMINS [Concomitant]
     Active Substance: VITAMINS
  9. RANITIDINE. [Concomitant]
     Active Substance: RANITIDINE
  10. HYDROCODONE [Concomitant]
     Active Substance: HYDROCODONE
  11. TIZANIDINE. [Concomitant]
     Active Substance: TIZANIDINE
  12. METHYL FOLATE [Concomitant]
     Active Substance: LEVOMEFOLATE CALCIUM

REACTIONS (3)
  - Urinary retention [Not Recovered/Not Resolved]
  - Arthralgia [Unknown]
  - Hip fracture [Unknown]

NARRATIVE: CASE EVENT DATE: 202008
